FAERS Safety Report 10009335 (Version 2)
Quarter: 2014Q1

REPORT INFORMATION
  Report Type: Spontaneous
  Country: US (occurrence: US)
  Receive Date: 20140313
  Receipt Date: 20140321
  Transmission Date: 20141002
  Serious: Yes (Other)
  Sender: FDA-Public Use
  Company Number: CHPA2014US003818

PATIENT
  Age: 5 Year
  Sex: Female

DRUGS (1)
  1. EX-LAX REG STR CHOCOLATED LAX PCS SEN [Suspect]
     Dosage: 10 DF, ONCE/SINGLE
     Route: 048
     Dates: start: 20140309, end: 20140309

REACTIONS (5)
  - Gastrointestinal pain [Recovered/Resolved]
  - Diarrhoea [Recovered/Resolved]
  - Decreased appetite [Recovered/Resolved]
  - Feeling abnormal [Recovered/Resolved]
  - Accidental exposure to product by child [Unknown]
